FAERS Safety Report 25169053 (Version 2)
Quarter: 2025Q2

REPORT INFORMATION
  Report Type: Spontaneous
  Country: JP (occurrence: JP)
  Receive Date: 20250407
  Receipt Date: 20250507
  Transmission Date: 20250717
  Serious: Yes (Other)
  Sender: ABBVIE
  Company Number: JP-JNJFOC-20250400122

PATIENT
  Age: 75 Year
  Sex: Male

DRUGS (1)
  1. IMBRUVICA [Suspect]
     Active Substance: IBRUTINIB
     Indication: Lymphocytic lymphoma
     Route: 048

REACTIONS (5)
  - Rash [Unknown]
  - Haematoma [Unknown]
  - Pneumonia fungal [Unknown]
  - Upper gastrointestinal haemorrhage [Unknown]
  - Atrial fibrillation [Unknown]
